FAERS Safety Report 7582743-4 (Version None)
Quarter: 2011Q2

REPORT INFORMATION
  Report Type: 
  Country: None (occurrence: None)
  Receive Date: 20110623
  Receipt Date: 20110609
  Transmission Date: 20111010
  Serious: Yes (Other)
  Sender: FDA-Public Use
  Company Number: 2011FR0189

PATIENT
  Age: 48 Year

DRUGS (2)
  1. ANAKINRA (ANAKINRA) [Suspect]
     Indication: JUVENILE ARTHRITIS
     Dosage: 100 MG 9100 MG, 1 IN 1 D)
  2. CYCLOSPORINE [Concomitant]

REACTIONS (2)
  - NEUROGLYCOPENIA [None]
  - LEUKOCYTOSIS [None]
